FAERS Safety Report 6011671-0 (Version None)
Quarter: 2008Q4

REPORT INFORMATION
  Report Type: 
  Country: None (occurrence: None)
  Receive Date: 20081218
  Receipt Date: 19861106
  Transmission Date: 20090506
  Serious: Yes (Death)
  Sender: FDA-Public Use
  Company Number: GB-ROCHE-860150307001

PATIENT
  Age: 61 Year
  Sex: Male

DRUGS (2)
  1. INTERFERON ALFA-2A [Suspect]
     Indication: MALIGNANT MELANOMA
     Dosage: CUMULATIVE DOSE: 597 MIU.
     Route: 030
     Dates: start: 19851022, end: 19851231
  2. ETRETINATE [Suspect]
     Indication: MALIGNANT MELANOMA
     Dosage: CUMULATIVE DOSE: 2525 MG.
     Route: 048
     Dates: start: 19851022, end: 19851231

REACTIONS (1)
  - MALIGNANT MELANOMA [None]
